FAERS Safety Report 5010705-X (Version None)
Quarter: 2006Q2

REPORT INFORMATION
  Report Type: 
  Country: None (occurrence: None)
  Receive Date: 20060525
  Receipt Date: 20060516
  Transmission Date: 20061013
  Serious: Yes (Hospitalization)
  Sender: FDA-Public Use
  Company Number: FR-BRISTOL-MYERS SQUIBB COMPANY-13381280

PATIENT
  Age: 56 Year
  Sex: Male
  Weight: 55 kg

DRUGS (6)
  1. VIDEX EC [Suspect]
     Indication: HIV INFECTION
     Route: 048
     Dates: start: 20020828
  2. REYATAZ [Suspect]
     Indication: HIV INFECTION
     Route: 048
     Dates: start: 20050509
  3. PLAVIX [Suspect]
     Indication: ARTERIOPATHIC DISEASE
     Dates: start: 20040901
  4. NORVIR [Suspect]
     Indication: HIV INFECTION
     Dates: start: 20050509
  5. VIREAD [Suspect]
     Indication: HIV INFECTION
     Dates: start: 20020828, end: 20060221
  6. DEPAKENE [Suspect]
     Dates: start: 19990604

REACTIONS (1)
  - FANCONI SYNDROME [None]
